FAERS Safety Report 9137410 (Version 1)
Quarter: 2013Q1

REPORT INFORMATION
  Report Type: Spontaneous
  Country: US (occurrence: US)
  Receive Date: 20130304
  Receipt Date: 20130304
  Transmission Date: 20140127
  Serious: No
  Sender: FDA-Public Use
  Company Number: US-ENDO PHARMACEUTICALS INC.-ENDC20110017

PATIENT
  Age: 52 Year
  Sex: Male
  Weight: 114.14 kg

DRUGS (8)
  1. ENDOCET [Suspect]
     Indication: MUSCULOSKELETAL PAIN
     Dosage: UNKNOWN
     Route: 048
     Dates: start: 20110222, end: 20110226
  2. PRISTIQ [Suspect]
     Indication: DEPRESSION
     Route: 048
     Dates: start: 20110130
  3. ACETYLSALICYLIC ACID [Concomitant]
     Indication: PRODUCT USED FOR UNKNOWN INDICATION
     Dosage: 81 MG
     Route: 065
  4. VITAMIN D [Concomitant]
     Indication: PRODUCT USED FOR UNKNOWN INDICATION
     Dosage: UNKNOWN
     Route: 065
  5. NABUMETONE [Concomitant]
     Indication: PRODUCT USED FOR UNKNOWN INDICATION
     Route: 065
  6. HYDROCODONE [Concomitant]
     Indication: PRODUCT USED FOR UNKNOWN INDICATION
     Dosage: UNKNOWN
     Route: 048
  7. GABAPENTIN [Concomitant]
     Indication: PRODUCT USED FOR UNKNOWN INDICATION
     Dosage: 300 MG
     Route: 048
  8. PRILOSEC [Concomitant]
     Indication: PRODUCT USED FOR UNKNOWN INDICATION
     Route: 048

REACTIONS (6)
  - Restlessness [Not Recovered/Not Resolved]
  - Functional gastrointestinal disorder [Not Recovered/Not Resolved]
  - Panic attack [Not Recovered/Not Resolved]
  - Musculoskeletal pain [Recovered/Resolved]
  - Constipation [Not Recovered/Not Resolved]
  - Insomnia [Not Recovered/Not Resolved]
